FAERS Safety Report 4318036-8 (Version None)
Quarter: 2004Q1

REPORT INFORMATION
  Report Type: 
  Country: None (occurrence: None)
  Receive Date: 20040317
  Receipt Date: 20040311
  Transmission Date: 20041129
  Serious: Yes (Other)
  Sender: FDA-Public Use
  Company Number: 200413119GDDC

PATIENT
  Sex: Female

DRUGS (1)
  1. CLOMID [Suspect]
     Dosage: DOSE: UNK

REACTIONS (1)
  - OPTIC NERVE INJURY [None]
